FAERS Safety Report 4916294-X (Version None)
Quarter: 2006Q1

REPORT INFORMATION
  Report Type: 
  Country: None (occurrence: None)
  Receive Date: 20060113
  Receipt Date: 20050924
  Transmission Date: 20060701
  Serious: No
  Sender: FDA-Public Use
  Company Number: 2005SP003205

PATIENT
  Age: 53 Year
  Sex: Male
  Weight: 104.3273 kg

DRUGS (6)
  1. LUNESTA [Suspect]
     Indication: INSOMNIA
     Dosage: 3 MG; ORAL
     Route: 048
     Dates: start: 20050923, end: 20050901
  2. LITHIUM CITRATE [Concomitant]
  3. LEVOTHYROXINE SODIUM [Concomitant]
  4. CELEBREX [Concomitant]
  5. LORAZEPAM [Concomitant]
  6. TIZANIDINE HCL [Concomitant]

REACTIONS (2)
  - DRUG INEFFECTIVE [None]
  - INSOMNIA [None]
